FAERS Safety Report 24800927 (Version 1)
Quarter: 2025Q1

REPORT INFORMATION
  Report Type: Spontaneous
  Country: AU (occurrence: AU)
  Receive Date: 20250102
  Receipt Date: 20250102
  Transmission Date: 20250409
  Serious: Yes (Other)
  Sender: PFIZER
  Company Number: AU-PFIZER INC-PV202400170270

PATIENT
  Age: 31 Year
  Sex: Female

DRUGS (1)
  1. DEPO-PROVERA [Suspect]
     Active Substance: MEDROXYPROGESTERONE ACETATE
     Indication: Contraception

REACTIONS (1)
  - Meningioma [Unknown]
